FAERS Safety Report 5832168-4 (Version None)
Quarter: 2008Q3

REPORT INFORMATION
  Report Type: 
  Country: None (occurrence: None)
  Receive Date: 20080731
  Receipt Date: 20080731
  Transmission Date: 20090109
  Serious: Yes (Hospitalization)
  Sender: FDA-Public Use
  Company Number: None

PATIENT
  Sex: Female
  Weight: 68.0396 kg

DRUGS (2)
  1. LEVAQUIN [Suspect]
     Indication: CHEST DISCOMFORT
     Dosage: 1 DOSE ONLY
     Dates: start: 20071127, end: 20071127
  2. LEVAQUIN [Suspect]
     Indication: SINUSITIS
     Dosage: 1 DOSE ONLY
     Dates: start: 20071127, end: 20071127

REACTIONS (3)
  - CONFUSIONAL STATE [None]
  - RESTLESSNESS [None]
  - UNRESPONSIVE TO STIMULI [None]
